FAERS Safety Report 18556502 (Version 5)
Quarter: 2022Q3

REPORT INFORMATION
  Report Type: Report from Study
  Country: US (occurrence: US)
  Receive Date: 20201128
  Receipt Date: 20220812
  Transmission Date: 20221027
  Serious: Yes (Hospitalization, Other)
  Sender: FDA-Public Use
  Company Number: US-TAKEDA-2020TUS053127

PATIENT
  Sex: Female

DRUGS (20)
  1. HUMAN C1-ESTERASE INHIBITOR [Suspect]
     Active Substance: HUMAN C1-ESTERASE INHIBITOR
     Indication: Immune system disorder
     Dosage: 1500 INTERNATIONAL UNIT, 3/WEEK
     Route: 042
     Dates: start: 20160826
  2. HUMAN C1-ESTERASE INHIBITOR [Suspect]
     Active Substance: HUMAN C1-ESTERASE INHIBITOR
     Indication: Immune system disorder
     Dosage: 1500 INTERNATIONAL UNIT, 3/WEEK
     Route: 042
     Dates: start: 20160826
  3. HUMAN C1-ESTERASE INHIBITOR [Suspect]
     Active Substance: HUMAN C1-ESTERASE INHIBITOR
     Indication: Immune system disorder
     Dosage: 1500 INTERNATIONAL UNIT, 3/WEEK
     Route: 042
     Dates: start: 20160826
  4. HUMAN C1-ESTERASE INHIBITOR [Suspect]
     Active Substance: HUMAN C1-ESTERASE INHIBITOR
     Indication: Polycystic ovaries
     Dosage: 1500 INTERNATIONAL UNIT, 3/WEEK
     Route: 042
     Dates: start: 20160825
  5. HUMAN C1-ESTERASE INHIBITOR [Suspect]
     Active Substance: HUMAN C1-ESTERASE INHIBITOR
     Indication: Polycystic ovaries
     Dosage: 1500 INTERNATIONAL UNIT, 3/WEEK
     Route: 042
     Dates: start: 20160825
  6. HUMAN C1-ESTERASE INHIBITOR [Suspect]
     Active Substance: HUMAN C1-ESTERASE INHIBITOR
     Indication: Polycystic ovaries
     Dosage: 1500 INTERNATIONAL UNIT, 3/WEEK
     Route: 042
     Dates: start: 20160825
  7. HUMAN C1-ESTERASE INHIBITOR [Suspect]
     Active Substance: HUMAN C1-ESTERASE INHIBITOR
     Indication: Uterine disorder
  8. HUMAN C1-ESTERASE INHIBITOR [Suspect]
     Active Substance: HUMAN C1-ESTERASE INHIBITOR
     Indication: Uterine disorder
  9. HUMAN C1-ESTERASE INHIBITOR [Suspect]
     Active Substance: HUMAN C1-ESTERASE INHIBITOR
     Indication: Uterine disorder
  10. HUMAN C1-ESTERASE INHIBITOR [Suspect]
     Active Substance: HUMAN C1-ESTERASE INHIBITOR
     Indication: Vaginal haemorrhage
  11. HUMAN C1-ESTERASE INHIBITOR [Suspect]
     Active Substance: HUMAN C1-ESTERASE INHIBITOR
     Indication: Vaginal haemorrhage
  12. HUMAN C1-ESTERASE INHIBITOR [Suspect]
     Active Substance: HUMAN C1-ESTERASE INHIBITOR
     Indication: Vaginal haemorrhage
  13. FIRAZYR [Suspect]
     Active Substance: ICATIBANT ACETATE
     Indication: Immunodeficiency
     Dosage: 30 MILLIGRAM,PRN
     Route: 058
     Dates: start: 2016
  14. FIRAZYR [Suspect]
     Active Substance: ICATIBANT ACETATE
     Indication: Immunodeficiency
     Dosage: 30 MILLIGRAM,PRN
     Route: 058
     Dates: start: 2016
  15. FIRAZYR [Suspect]
     Active Substance: ICATIBANT ACETATE
     Indication: Polycystic ovaries
     Dosage: 30 MILLIGRAM,PRN
     Route: 058
     Dates: start: 20161008
  16. FIRAZYR [Suspect]
     Active Substance: ICATIBANT ACETATE
     Indication: Polycystic ovaries
     Dosage: 30 MILLIGRAM,PRN
     Route: 058
     Dates: start: 20161008
  17. FIRAZYR [Suspect]
     Active Substance: ICATIBANT ACETATE
     Indication: Uterine disorder
  18. FIRAZYR [Suspect]
     Active Substance: ICATIBANT ACETATE
     Indication: Uterine disorder
  19. FIRAZYR [Suspect]
     Active Substance: ICATIBANT ACETATE
     Indication: Vaginal haemorrhage
  20. FIRAZYR [Suspect]
     Active Substance: ICATIBANT ACETATE
     Indication: Vaginal haemorrhage

REACTIONS (2)
  - Hereditary angioedema [Recovered/Resolved]
  - Central venous catheterisation [Unknown]
